FAERS Safety Report 15472720 (Version 8)
Quarter: 2019Q3

REPORT INFORMATION
  Report Type: Spontaneous
  Country: US (occurrence: US)
  Receive Date: 20181008
  Receipt Date: 20190718
  Transmission Date: 20191004
  Serious: Yes (Hospitalization, Other)
  Sender: FDA-Public Use
  Company Number: US-PFIZER INC-2018398033

PATIENT
  Age: 69 Year
  Sex: Female

DRUGS (2)
  1. XELJANZ XR [Suspect]
     Active Substance: TOFACITINIB CITRATE
     Indication: RHEUMATOID ARTHRITIS
     Dosage: UNK
     Route: 048
     Dates: end: 201808
  2. XELJANZ XR [Suspect]
     Active Substance: TOFACITINIB CITRATE
     Dosage: 11 MG, DAILY
     Route: 048
     Dates: start: 20190221

REACTIONS (11)
  - Peripheral swelling [Not Recovered/Not Resolved]
  - Urinary tract infection [Recovered/Resolved]
  - Bronchitis [Unknown]
  - Pain [Not Recovered/Not Resolved]
  - Localised infection [Recovered/Resolved]
  - Visual impairment [Not Recovered/Not Resolved]
  - Depression [Unknown]
  - Hip fracture [Unknown]
  - Fall [Unknown]
  - Arthropathy [Not Recovered/Not Resolved]
  - Infection [Recovered/Resolved]

NARRATIVE: CASE EVENT DATE: 2019
